FAERS Safety Report 11881413 (Version 1)
Quarter: 2015Q4

REPORT INFORMATION
  Report Type: Spontaneous
  Country: CN (occurrence: CN)
  Receive Date: 20151231
  Receipt Date: 20151231
  Transmission Date: 20160305
  Serious: Yes (Hospitalization)
  Sender: FDA-Public Use
  Company Number: CN-PFIZER INC-2015459809

PATIENT
  Age: 57 Year
  Sex: Female

DRUGS (3)
  1. DEXRAZOXANE. [Concomitant]
     Active Substance: DEXRAZOXANE
     Indication: CHEMOTHERAPY
     Dosage: 1.5 G, UNK
     Route: 042
     Dates: start: 20151219
  2. PHARMORUBICIN [Suspect]
     Active Substance: EPIRUBICIN
     Indication: INVASIVE BREAST CARCINOMA
     Dosage: 100 MG/M2 (135MG)
     Route: 042
     Dates: start: 20151219
  3. CYCLOPHOSPHAMIDE. [Concomitant]
     Active Substance: CYCLOPHOSPHAMIDE
     Indication: CHEMOTHERAPY
     Dosage: 0.75 G, UNK
     Route: 042
     Dates: start: 20151219

REACTIONS (4)
  - Mydriasis [Unknown]
  - Blood pressure decreased [Unknown]
  - Anaphylactic shock [Unknown]
  - Vomiting [Unknown]

NARRATIVE: CASE EVENT DATE: 20151219
